FAERS Safety Report 8485841-6 (Version None)
Quarter: 2012Q3

REPORT INFORMATION
  Report Type: 
  Country: None (occurrence: None)
  Receive Date: 20120703
  Receipt Date: 20120629
  Transmission Date: 20120928
  Serious: Yes (Life-Threatening, Hospitalization, Other)
  Sender: FDA-Public Use
  Company Number: PHHY2012US055654

PATIENT
  Age: 30 Year
  Sex: Female

DRUGS (3)
  1. METOPROLOL SUCCINATE [Suspect]
  2. AMIODARONE HCL [Suspect]
  3. DILTIAZEM HYDROCHOLORIDE [Suspect]

REACTIONS (8)
  - ABDOMINAL PAIN [None]
  - VENTRICULAR ARRHYTHMIA [None]
  - CENTRAL VENOUS PRESSURE DECREASED [None]
  - ANURIA [None]
  - OVERDOSE [None]
  - CONFUSIONAL STATE [None]
  - EJECTION FRACTION DECREASED [None]
  - HYPOTENSION [None]
